FAERS Safety Report 7011048-5 (Version None)
Quarter: 2010Q3

REPORT INFORMATION
  Report Type: 
  Country: None (occurrence: None)
  Receive Date: 20100923
  Receipt Date: 20081028
  Transmission Date: 20110219
  Serious: No
  Sender: FDA-Public Use
  Company Number: US-WYE-H06591908

PATIENT
  Sex: Female

DRUGS (4)
  1. EFFEXOR XR [Suspect]
     Indication: DEPRESSION
     Dosage: TAPERED OFF EFFEXOR XR
     Route: 048
     Dates: start: 20080101, end: 20080901
  2. EFFEXOR XR [Suspect]
     Indication: ANXIETY
     Dosage: TAPERED UP TO 300 MG AGAIN
     Route: 048
     Dates: start: 20080901, end: 20080901
  3. EFFEXOR XR [Suspect]
     Route: 048
     Dates: start: 20080901
  4. EFFEXOR XR [Suspect]
     Route: 048
     Dates: start: 20050101, end: 20080101

REACTIONS (4)
  - ANXIETY [None]
  - CONDITION AGGRAVATED [None]
  - DRUG INEFFECTIVE [None]
  - FEELING HOT [None]
